FAERS Safety Report 4522164-1 (Version None)
Quarter: 2004Q4

REPORT INFORMATION
  Report Type: 
  Country: None (occurrence: None)
  Receive Date: 20041209
  Receipt Date: 20041130
  Transmission Date: 20050328
  Serious: Yes (Other)
  Sender: FDA-Public Use
  Company Number: GR-ROCHE-387602

PATIENT
  Age: 36 Year
  Sex: Female

DRUGS (3)
  1. XENICAL [Suspect]
     Indication: OBESITY
     Route: 048
     Dates: start: 20040915, end: 20041025
  2. XENICAL [Suspect]
     Route: 048
     Dates: start: 20041025
  3. LEVOTHYROXIN-SODIUM [Concomitant]
     Indication: HYPOTHYROIDISM
     Route: 048

REACTIONS (2)
  - BLOOD CREATINE PHOSPHOKINASE INCREASED [None]
  - EXTRASYSTOLES [None]
